FAERS Safety Report 6367833-6 (Version None)
Quarter: 2009Q3

REPORT INFORMATION
  Report Type: 
  Country: None (occurrence: None)
  Receive Date: 20090921
  Receipt Date: 20090909
  Transmission Date: 20100115
  Serious: Yes (Other)
  Sender: FDA-Public Use
  Company Number: US-TYCO HEALTHCARE/MALLINCKRODT-T200901707

PATIENT
  Age: 10 Year
  Sex: Female

DRUGS (2)
  1. DEXTROAMPETAMINE SULFATE TAB [Suspect]
     Indication: ATTENTION DEFICIT/HYPERACTIVITY DISORDER
     Dosage: 20 MG, QD FOR 10 MONTHS
  2. DEXTROAMPETAMINE SULFATE TAB [Suspect]
     Dosage: 30 MG, QD FOR ONE MONTH BEFORE HER PRESENTATION

REACTIONS (1)
  - VASCULITIS NECROTISING [None]
